FAERS Safety Report 4651035-5 (Version None)
Quarter: 2005Q2

REPORT INFORMATION
  Report Type: 
  Country: None (occurrence: None)
  Receive Date: 20050429
  Receipt Date: 20050420
  Transmission Date: 20051028
  Serious: Yes (Other)
  Sender: FDA-Public Use
  Company Number: 2005063969

PATIENT
  Age: 72 Year
  Sex: Female
  Weight: 113.3993 kg

DRUGS (8)
  1. NORVASC [Suspect]
     Indication: HYPERTENSION
     Dosage: 10 MG (10 MG, 1 IN 1 D), ORAL
     Route: 048
     Dates: start: 20040401
  2. LEVOTHYROXINE SODIUM [Concomitant]
  3. ASPIRIN [Concomitant]
  4. RAMIPRIL [Concomitant]
  5. CLOPIDOGREL BISULFATE [Concomitant]
  6. ALENDRONATE SODIUM [Concomitant]
  7. METOPROLOL TARTRATE [Concomitant]
  8. PAROXETINE HCL [Concomitant]

REACTIONS (6)
  - CONSTIPATION [None]
  - DIFFICULTY IN WALKING [None]
  - HEADACHE [None]
  - JOINT SWELLING [None]
  - NEPHROLITHIASIS [None]
  - OEDEMA PERIPHERAL [None]
